FAERS Safety Report 25320317 (Version 1)
Quarter: 2025Q2

REPORT INFORMATION
  Report Type: Report from Study
  Country: CO (occurrence: CO)
  Receive Date: 20250515
  Receipt Date: 20250515
  Transmission Date: 20250716
  Serious: Yes (Hospitalization, Other)
  Sender: BAYER HEALTHCARE PHARMACEUTICALS INC.
  Company Number: CO-BAYER-2024A160415

PATIENT
  Age: 55 Year

DRUGS (4)
  1. ADEMPAS [Suspect]
     Active Substance: RIOCIGUAT
     Indication: Pulmonary hypertension
     Dosage: 1 MG, Q8HR
     Route: 048
     Dates: start: 20231019
  2. ADEMPAS [Suspect]
     Active Substance: RIOCIGUAT
     Indication: Pulmonary hypertension
     Dates: start: 20230915, end: 202410
  3. ADEMPAS [Suspect]
     Active Substance: RIOCIGUAT
     Indication: Pulmonary hypertension
  4. ADEMPAS [Suspect]
     Active Substance: RIOCIGUAT
     Indication: Pulmonary hypertension
     Dosage: 1 MG, Q8HR
     Dates: start: 20230915

REACTIONS (22)
  - Productive cough [Recovering/Resolving]
  - Arrhythmia [Recovering/Resolving]
  - Respiratory tract infection [Recovering/Resolving]
  - Hypoxia [None]
  - Lung disorder [Recovering/Resolving]
  - Fatigue [Not Recovered/Not Resolved]
  - Pain in extremity [Not Recovered/Not Resolved]
  - Gait inability [Recovering/Resolving]
  - Cough [Recovering/Resolving]
  - Productive cough [None]
  - Dyspnoea [Recovering/Resolving]
  - Fatigue [Recovering/Resolving]
  - Dyspnoea [Recovering/Resolving]
  - Cardiomegaly [Recovering/Resolving]
  - Product supply issue [Not Recovered/Not Resolved]
  - Treatment noncompliance [None]
  - Arrhythmia [Recovering/Resolving]
  - Respiratory tract infection [Recovering/Resolving]
  - Influenza [None]
  - Productive cough [Recovering/Resolving]
  - Chest pain [Recovered/Resolved]
  - Abdominal pain upper [None]

NARRATIVE: CASE EVENT DATE: 20241026
